FAERS Safety Report 13898770 (Version 1)
Quarter: 2017Q3

REPORT INFORMATION
  Report Type: Spontaneous
  Country: US (occurrence: None)
  Receive Date: 20170822
  Receipt Date: 20170822
  Transmission Date: 20171127
  Serious: No
  Sender: FDA-Public Use
  Company Number: None

PATIENT
  Age: 58 Year
  Sex: Female

DRUGS (1)
  1. AUGMENTIN [Suspect]
     Active Substance: AMOXICILLIN\CLAVULANATE POTASSIUM
     Dates: start: 20150112, end: 20150121

REACTIONS (10)
  - Drug-induced liver injury [None]
  - Dysarthria [None]
  - Chromaturia [None]
  - Diarrhoea [None]
  - Pruritus [None]
  - Ammonia increased [None]
  - Faeces pale [None]
  - Jaundice [None]
  - Confusional state [None]
  - Memory impairment [None]

NARRATIVE: CASE EVENT DATE: 20150127
